FAERS Safety Report 9108509 (Version 1)
Quarter: 2013Q1

REPORT INFORMATION
  Report Type: Report from Study
  Country: BR (occurrence: BR)
  Receive Date: 20130222
  Receipt Date: 20130222
  Transmission Date: 20140127
  Serious: Yes (Other)
  Sender: FDA-Public Use
  Company Number: BR-ABBOTT-13P-020-1051977-00

PATIENT
  Sex: Female
  Weight: 53 kg

DRUGS (10)
  1. HUMIRA [Suspect]
     Indication: RHEUMATOID ARTHRITIS
     Route: 058
     Dates: start: 20090901, end: 2011
  2. HUMIRA [Suspect]
     Route: 058
     Dates: start: 20130206
  3. LOSARTAN [Concomitant]
     Indication: INFARCTION
     Dosage: 50 MG DAILY
     Route: 048
     Dates: start: 200311
  4. LOSARTAN [Concomitant]
     Indication: BLOOD PRESSURE MANAGEMENT
  5. AAS [Concomitant]
     Indication: ANTICOAGULANT THERAPY
     Route: 048
     Dates: start: 200311
  6. CARVEDILOL [Concomitant]
     Indication: BLOOD PRESSURE MANAGEMENT
     Route: 048
     Dates: start: 200311
  7. LASIX [Concomitant]
     Indication: DIURETIC THERAPY
     Route: 048
     Dates: start: 2004
  8. LASIX [Concomitant]
     Indication: FLUID RETENTION
  9. OSTEONUTRI [Concomitant]
     Indication: OSTEOPOROSIS
     Route: 048
  10. ARAVA [Concomitant]
     Indication: PRODUCT USED FOR UNKNOWN INDICATION
     Route: 048
     Dates: start: 2007

REACTIONS (5)
  - Bone erosion [Recovered/Resolved]
  - Bone fissure [Recovered/Resolved]
  - Arthralgia [Recovering/Resolving]
  - Gait disturbance [Recovered/Resolved]
  - Pain in extremity [Recovered/Resolved]
